FAERS Safety Report 8860959 (Version 4)
Quarter: 2014Q3

REPORT INFORMATION
  Report Type: Report from Study
  Country: JP (occurrence: JP)
  Receive Date: 20121025
  Receipt Date: 20140804
  Transmission Date: 20150326
  Serious: Yes (Hospitalization, Other)
  Sender: FDA-Public Use
  Company Number: JP-009507513-1210JPN010894

PATIENT
  Age: 61 Year
  Sex: Male
  Weight: 57 kg

DRUGS (15)
  1. REBETOL [Suspect]
     Active Substance: RIBAVIRIN
     Dosage: 200 MG, BID
     Route: 048
     Dates: start: 20120512, end: 20120601
  2. FERON [Suspect]
     Active Substance: INTERFERON BETA
     Indication: CHRONIC HEPATITIS C
     Dosage: 6 MILLION-BILLION UNIT,  6 TIMES A WEEK
     Route: 042
     Dates: start: 20110905, end: 20110918
  3. URSO [Concomitant]
     Active Substance: URSODIOL
     Indication: CHRONIC HEPATITIS C
     Dosage: TOTAL DAILY DOSE 900 MG, DIVIDED DOSE FREQUENCY UNKNOWN
     Route: 048
     Dates: start: 20110617
  4. LOXONIN [Concomitant]
     Active Substance: LOXOPROFEN SODIUM
     Dosage: DAILY DOSE UNKNOWN
     Route: 065
  5. PROMAC [Concomitant]
     Active Substance: NITROFURANTOIN
     Indication: GASTRIC ULCER
     Dosage: TOTAL DAILY DOSE 150 MG, DIVIDED DOSE FREQUENCY UNKNOWN
     Route: 048
     Dates: start: 20110912
  6. SENNA [Concomitant]
     Active Substance: SENNA LEAF\SENNOSIDES\SENNOSIDES A AND B
     Indication: CONSTIPATION
     Dosage: TOTAL DAILY DOSE 1 G, DIVIDED DOSE FREQUENCY UNKNOWN
     Route: 048
     Dates: start: 20110912
  7. FERON [Suspect]
     Active Substance: INTERFERON BETA
     Dosage: 6 MILLION-BILLION UNIT,  6 TIMES A WEEK
     Route: 042
     Dates: start: 20110919, end: 20120530
  8. REBETOL [Suspect]
     Active Substance: RIBAVIRIN
     Indication: CHRONIC HEPATITIS C
     Dosage: 200 MG IN THE MORNING AND 400 IN THE EVENING,DAILY DOSE UNKNOWN
     Route: 048
     Dates: start: 20110905, end: 20120511
  9. LACTULOSE. [Concomitant]
     Active Substance: LACTULOSE
     Indication: CONSTIPATION
     Dosage: TOTAL DAILY DOSE 60 ML, DIVIDED DOSE FREQUENCY UNKNOWN
     Route: 048
     Dates: start: 20110902
  10. LIVACT [Concomitant]
     Indication: CHRONIC HEPATITIS C
     Dosage: POR, TOTAL DAILY DOSE 3DF, DIVIDED DOSE FREQUENCY UNKNOWN
     Route: 048
     Dates: start: 20110207
  11. FLUITRAN [Concomitant]
     Active Substance: TRICHLORMETHIAZIDE
     Indication: HYPERTENSION
     Dosage: TOTAL DAILY DOSE 2 MG, DIVIDED DOSE FREQUENCY UNKNOWN
     Route: 048
     Dates: end: 20120724
  12. ALLEGRA [Concomitant]
     Active Substance: FEXOFENADINE HYDROCHLORIDE
     Dosage: DAILY DOSAGE UNKNOWN
     Route: 048
  13. ZYLORIC [Concomitant]
     Active Substance: ALLOPURINOL
     Indication: HYPERURICAEMIA
     Dosage: TOTAL DAILY DOSE 100 MG, DIVIDED DOSE FREQUENCY UNKNOWN
     Route: 048
     Dates: start: 20110912
  14. TAKEPRON [Concomitant]
     Active Substance: LANSOPRAZOLE
     Indication: PROPHYLAXIS AGAINST GASTROINTESTINAL ULCER
     Dosage: TOTAL DAILY DOSE 30 MG, DIVIDED DOSE FREQUENCY UNKNOWN
     Route: 048
  15. ADALAT [Concomitant]
     Active Substance: NIFEDIPINE
     Indication: HYPERTENSION
     Dosage: TOTAL DAILY DOSE 40 MG, DIVIDED DOSE FREQUENCY UNKNOWN
     Route: 048

REACTIONS (8)
  - Neutrophil count decreased [Recovered/Resolved]
  - Pyrexia [Recovering/Resolving]
  - Pruritus [Recovering/Resolving]
  - Hypoalbuminaemia [Recovered/Resolved]
  - Anaemia [Recovered/Resolved]
  - Hypoproteinaemia [Recovered/Resolved]
  - Gastrointestinal haemorrhage [Recovered/Resolved]
  - Protein urine [Recovered/Resolved]

NARRATIVE: CASE EVENT DATE: 20110905
